FAERS Safety Report 25903627 (Version 2)
Quarter: 2025Q4

REPORT INFORMATION
  Report Type: Spontaneous
  Country: CH (occurrence: CH)
  Receive Date: 20251010
  Receipt Date: 20251212
  Transmission Date: 20260118
  Serious: No
  Sender: CSL BEHRING
  Company Number: CH-BEH-2025221235

PATIENT
  Sex: Male

DRUGS (13)
  1. DIFELIKEFALIN ACETATE [Suspect]
     Active Substance: DIFELIKEFALIN ACETATE
     Indication: Pruritus
     Dosage: UNK
     Route: 065
     Dates: start: 20230417, end: 20250307
  2. ARANESP [Concomitant]
     Active Substance: DARBEPOETIN ALFA
     Dosage: 40 ?G, QD
  3. FERRIC CARBOXYMALTOSE [Concomitant]
     Active Substance: FERRIC CARBOXYMALTOSE
  4. CYANOCOBALAMIN [Concomitant]
     Active Substance: CYANOCOBALAMIN
  5. DILTIAZEM HYDROCHLORIDE [Concomitant]
     Active Substance: DILTIAZEM HYDROCHLORIDE
     Dosage: 1 DF, QD
  6. LASIX [Concomitant]
     Active Substance: FUROSEMIDE
     Dosage: 0.5 DF, BID
  7. PANTOZOL [Concomitant]
     Active Substance: PANTOPRAZOLE SODIUM
     Dosage: 1 DF, QD
  8. ELIQUIS [Concomitant]
     Active Substance: APIXABAN
     Dosage: 1 DF, BID
  9. MAGNESIUM ASPARTATE HYDROCHLORIDE [Concomitant]
     Active Substance: MAGNESIUM ASPARTATE HYDROCHLORIDE
  10. BEROCCA [Concomitant]
     Active Substance: VITAMINS
     Dosage: 1 DF, QD
  11. OLMESARTAN SANDOZ [Concomitant]
  12. GABAPENTIN [Concomitant]
     Active Substance: GABAPENTIN
     Dosage: 1 DF, QD
  13. FOLIC ACID [Concomitant]
     Active Substance: FOLIC ACID
     Dosage: 1 DF, QD

REACTIONS (3)
  - Peripheral arterial occlusive disease [Fatal]
  - Cardiac arrest [Fatal]
  - Surgery [Fatal]

NARRATIVE: CASE EVENT DATE: 20250307
